FAERS Safety Report 6226704-6 (Version None)
Quarter: 2009Q2

REPORT INFORMATION
  Report Type: 
  Country: None (occurrence: None)
  Receive Date: 20090610
  Receipt Date: 20090528
  Transmission Date: 20091009
  Serious: Yes (Hospitalization)
  Sender: FDA-Public Use
  Company Number: NL-WYE-G03761609

PATIENT
  Age: 33 Year
  Sex: Female

DRUGS (1)
  1. EFFEXOR XR [Suspect]
     Indication: DEPRESSION
     Dosage: 150 MG 1X PER 1 DAY
     Dates: start: 20080501, end: 20090201

REACTIONS (3)
  - LUNG INFECTION [None]
  - RESPIRATORY TRACT INFLAMMATION [None]
  - SCAR [None]
